FAERS Safety Report 15306112 (Version 17)
Quarter: 2021Q4

REPORT INFORMATION
  Report Type: Spontaneous
  Country: US (occurrence: US)
  Receive Date: 20180822
  Receipt Date: 20211224
  Transmission Date: 20220303
  Serious: Yes (Hospitalization, Other)
  Sender: FDA-Public Use
  Company Number: US-PFIZER INC-2018128677

PATIENT
  Age: 61 Year
  Sex: Female

DRUGS (4)
  1. LYRICA [Suspect]
     Active Substance: PREGABALIN
     Indication: Polyneuropathy
     Dosage: 300 MG, 1 CAPSULE 2 TIMES EVERYDAY/1 CAPSULE BY ORAL ROUTE 2 TIMES EVERY DAY
     Route: 048
     Dates: start: 20180228
  2. LYRICA [Suspect]
     Active Substance: PREGABALIN
     Indication: Mononeuropathy
  3. LYRICA [Suspect]
     Active Substance: PREGABALIN
     Indication: Fibromyalgia
  4. LYRICA [Suspect]
     Active Substance: PREGABALIN
     Indication: Neuropathy peripheral

REACTIONS (9)
  - Pain [Recovered/Resolved]
  - Frustration tolerance decreased [Recovered/Resolved]
  - Loss of personal independence in daily activities [Recovered/Resolved]
  - Malaise [Recovered/Resolved]
  - Withdrawal syndrome [Recovered/Resolved]
  - Skin disorder [Recovered/Resolved]
  - Influenza like illness [Unknown]
  - Movement disorder [Unknown]
  - Dysgraphia [Unknown]

NARRATIVE: CASE EVENT DATE: 20180201
